FAERS Safety Report 19969347 (Version 3)
Quarter: 2022Q1

REPORT INFORMATION
  Report Type: Report from Study
  Country: US (occurrence: US)
  Receive Date: 20211019
  Receipt Date: 20220121
  Transmission Date: 20220423
  Serious: No
  Sender: FDA-Public Use
  Company Number: US-NOVARTISTESTPH-NVSC2021US236248

PATIENT
  Sex: Male

DRUGS (1)
  1. COSENTYX [Suspect]
     Active Substance: SECUKINUMAB
     Indication: Product used for unknown indication
     Dosage: 300 MG, BENEATH THE SKIN USUALLY VIA INJECTION
     Route: 058

REACTIONS (4)
  - Psoriasis [Unknown]
  - Pruritus [Unknown]
  - Discharge [Unknown]
  - Skin discolouration [Unknown]
